FAERS Safety Report 9061394 (Version 2)
Quarter: 2013Q1

REPORT INFORMATION
  Report Type: Spontaneous
  Country: US (occurrence: None)
  Receive Date: 20130118
  Receipt Date: 20130327
  Transmission Date: 20140127
  Serious: Yes (Other)
  Sender: FDA-Public Use
  Company Number: US-1196147

PATIENT
  Age: 68 Year
  Sex: Male

DRUGS (1)
  1. TRIESENCE INJECTION (TRIAMCINOLONE 40 MG/ML) [Suspect]
     Indication: MACULAR OEDEMA
     Dosage: (0.5 MG TOTAL OD INTRAOCULAR)
     Route: 031
     Dates: start: 20130104, end: 20130104

REACTIONS (3)
  - Endophthalmitis [None]
  - Visual acuity reduced [None]
  - Vitreous floaters [None]
